FAERS Safety Report 9464886 (Version 3)
Quarter: 2013Q4

REPORT INFORMATION
  Report Type: Report from Study
  Country: JP (occurrence: JP)
  Receive Date: 20130819
  Receipt Date: 20131221
  Transmission Date: 20140711
  Serious: Yes (Death, Other)
  Sender: FDA-Public Use
  Company Number: JP-ROCHE-1262813

PATIENT
  Age: 66 Year
  Sex: Female
  Weight: 49 kg

DRUGS (5)
  1. METHOXY POLYETHYLENE GLYCOL-EPOETIN BETA [Suspect]
     Indication: NEPHROGENIC ANAEMIA
     Route: 042
     Dates: start: 20120723, end: 20130722
  2. PRECIPITATED CALCIUM CARBONATE [Concomitant]
     Route: 048
  3. OLMETEC [Concomitant]
     Route: 048
  4. LASIX [Concomitant]
     Route: 048
  5. FESIN (JAPAN) [Concomitant]
     Route: 042
     Dates: start: 20130607

REACTIONS (2)
  - Cerebral haemorrhage [Fatal]
  - Hypertension [Recovering/Resolving]
